FAERS Safety Report 8583730-X (Version None)
Quarter: 2012Q3

REPORT INFORMATION
  Report Type: 
  Country: None (occurrence: None)
  Receive Date: 20120810
  Receipt Date: 20120719
  Transmission Date: 20120928
  Serious: Yes (Other)
  Sender: FDA-Public Use
  Company Number: JP-009507513-1207JPN007970

PATIENT

DRUGS (7)
  1. REBETOL [Suspect]
     Indication: HEPATITIS C
     Route: 048
     Dates: start: 20120515, end: 20120612
  2. OLOPATADINE HCL [Concomitant]
     Indication: PROPHYLAXIS
     Route: 048
     Dates: start: 20120515, end: 20120626
  3. [THERAPY UNSPECIFIED] [Concomitant]
     Indication: PROPHYLAXIS
     Route: 048
     Dates: start: 20120515, end: 20120626
  4. REBETOL [Suspect]
     Route: 048
     Dates: start: 20120613, end: 20120626
  5. TELAVIC [Suspect]
     Dosage: 1500 MG, ONCE
     Route: 048
     Dates: start: 20120606, end: 20120626
  6. PEG-INTRON [Suspect]
     Indication: HEPATITIS C
     Dosage: 80MCG/WEEK
     Route: 058
     Dates: start: 20120515, end: 20120620
  7. TELAVIC [Suspect]
     Indication: HEPATITIS C
     Route: 048
     Dates: start: 20120515, end: 20120605

REACTIONS (1)
  - RETINOPATHY [None]
